FAERS Safety Report 25100127 (Version 1)
Quarter: 2025Q1

REPORT INFORMATION
  Report Type: Spontaneous
  Country: GB (occurrence: GB)
  Receive Date: 20250320
  Receipt Date: 20250320
  Transmission Date: 20250408
  Serious: Yes (Disabling, Other)
  Sender: TORRENT PHARMA INC.
  Company Number: None

PATIENT
  Age: 16 Year
  Sex: Female

DRUGS (1)
  1. ESCITALOPRAM [Suspect]
     Active Substance: ESCITALOPRAM OXALATE
     Indication: Social anxiety disorder
     Route: 065

REACTIONS (7)
  - Product prescribing error [Unknown]
  - Anhedonia [Not Recovered/Not Resolved]
  - Sexual dysfunction [Unknown]
  - Emotional disorder [Unknown]
  - Hormone level abnormal [Unknown]
  - Autonomic nervous system imbalance [Unknown]
  - Off label use [Unknown]
